FAERS Safety Report 7329401-9 (Version None)
Quarter: 2011Q1

REPORT INFORMATION
  Report Type: 
  Country: None (occurrence: None)
  Receive Date: 20110228
  Receipt Date: 20110228
  Transmission Date: 20110831
  Serious: Yes (Other)
  Sender: FDA-Public Use
  Company Number: None

PATIENT
  Age: 52 Year
  Sex: Male
  Weight: 79.3795 kg

DRUGS (1)
  1. CHANTIX [Suspect]
     Indication: SMOKING CESSATION THERAPY
     Dosage: 1X DAY PO; 2X DAY PO
     Route: 048
     Dates: start: 20101121, end: 20101125

REACTIONS (4)
  - RASH [None]
  - HEADACHE [None]
  - BLISTER [None]
  - PRURITUS [None]
